FAERS Safety Report 8322989-0 (Version None)
Quarter: 2012Q2

REPORT INFORMATION
  Report Type: 
  Country: None (occurrence: None)
  Receive Date: 20120430
  Receipt Date: 20120416
  Transmission Date: 20120825
  Serious: Yes (Death, Hospitalization, Other)
  Sender: FDA-Public Use
  Company Number: US-MYLANLABS-2009AC000129

PATIENT
  Age: 79 Year
  Sex: Female
  Weight: 53.07 kg

DRUGS (34)
  1. ASPIRIN [Concomitant]
  2. SERTRALINE HYDROCHLORIDE [Concomitant]
  3. ALPRAZOLAM [Concomitant]
  4. AVANDIA [Concomitant]
  5. LOTREL [Concomitant]
  6. CEFACLOR [Concomitant]
  7. MUPIROCIN [Concomitant]
  8. FLAGYL [Concomitant]
  9. ALTACE [Concomitant]
     Route: 048
  10. CARVEDILOL [Concomitant]
  11. ANZEMET [Concomitant]
  12. CIPROFLOXACIN HCL [Concomitant]
  13. ZOSYN [Concomitant]
  14. PREMARIN [Concomitant]
     Route: 048
  15. ATENOLOL [Concomitant]
     Route: 048
  16. CEPHALEXIN [Concomitant]
  17. DILTIAZEM [Concomitant]
  18. LACTASE [Concomitant]
  19. LESCOL [Concomitant]
  20. COREG [Concomitant]
  21. ASTELIN [Concomitant]
  22. WARFARIN SODIUM [Concomitant]
  23. AMOXICILLIN [Concomitant]
  24. LYRICA [Concomitant]
  25. NITROGLYCERIN [Concomitant]
  26. LOMOTIL [Concomitant]
  27. DIGOXIN [Suspect]
     Indication: HEART RATE INCREASED
     Route: 048
     Dates: start: 20080312
  28. FUROSEMIDE [Concomitant]
  29. MONOKET [Concomitant]
  30. PANTOPRAZOLE [Concomitant]
  31. LORAZEPAM [Concomitant]
  32. MELOXICAM [Concomitant]
  33. PROTONIX [Concomitant]
  34. ZELNORM [Concomitant]

REACTIONS (42)
  - FATIGUE [None]
  - BRADYCARDIA [None]
  - BACK PAIN [None]
  - ABDOMINAL PAIN UPPER [None]
  - HYPOTENSION [None]
  - BLOOD PRESSURE INCREASED [None]
  - NAUSEA [None]
  - AMYLASE INCREASED [None]
  - ASTHENIA [None]
  - HIATUS HERNIA [None]
  - LIPASE INCREASED [None]
  - PAIN [None]
  - PALPITATIONS [None]
  - DIARRHOEA [None]
  - VOMITING [None]
  - DIZZINESS [None]
  - CORONARY ARTERY DISEASE [None]
  - MITRAL VALVE INCOMPETENCE [None]
  - CARDIAC PACEMAKER INSERTION [None]
  - ABDOMINAL TENDERNESS [None]
  - DIABETIC NEUROPATHY [None]
  - SICK SINUS SYNDROME [None]
  - SUPRAVENTRICULAR TACHYCARDIA [None]
  - ANGINA PECTORIS [None]
  - CARDIAC MURMUR [None]
  - CORONARY ARTERY BYPASS [None]
  - LEFT VENTRICULAR DYSFUNCTION [None]
  - ATRIAL FIBRILLATION [None]
  - CARDIAC FAILURE CONGESTIVE [None]
  - ILL-DEFINED DISORDER [None]
  - DEATH [None]
  - DIVERTICULITIS [None]
  - MUSCLE SPASMS [None]
  - DIARRHOEA HAEMORRHAGIC [None]
  - MITRAL VALVE REPAIR [None]
  - DIVERTICULUM [None]
  - INJURY [None]
  - PRESYNCOPE [None]
  - COLITIS [None]
  - GASTROENTERITIS [None]
  - PYREXIA [None]
  - SUPRAVENTRICULAR EXTRASYSTOLES [None]
